FAERS Safety Report 15277868 (Version 3)
Quarter: 2022Q3

REPORT INFORMATION
  Report Type: Other
  Country: CA (occurrence: CA)
  Receive Date: 20180814
  Receipt Date: 20220516
  Transmission Date: 20221027
  Serious: Yes (Other)
  Sender: FDA-Public Use
  Company Number: CA-APOPHARMA-2018AP018789

PATIENT
  Age: 21 Year
  Sex: Female

DRUGS (3)
  1. FERRIPROX [Suspect]
     Active Substance: DEFERIPRONE
     Indication: Product used for unknown indication
     Dosage: UNK
     Route: 065
  2. EXJADE [Suspect]
     Active Substance: DEFERASIROX
     Indication: Thalassaemia
     Dosage: UNK
     Route: 048
  3. JADENU [Suspect]
     Active Substance: DEFERASIROX
     Indication: Thalassaemia
     Dosage: 1080 MILLIGRAM, QD
     Route: 048

REACTIONS (3)
  - Blood iron increased [Unknown]
  - Drug intolerance [Unknown]
  - Neutropenia [Unknown]
